FAERS Safety Report 10094129 (Version 2)
Quarter: 2014Q2

REPORT INFORMATION
  Report Type: Spontaneous
  Country: US (occurrence: US)
  Receive Date: 20140422
  Receipt Date: 20140516
  Transmission Date: 20141212
  Serious: No
  Sender: FDA-Public Use
  Company Number: US-009507513-1404USA008958

PATIENT
  Age: 61 Year
  Sex: Female

DRUGS (6)
  1. NASONEX [Suspect]
     Indication: RHINITIS ALLERGIC
     Dosage: UNK SAMPLE
     Route: 045
  2. PROVENTIL HFA [Concomitant]
     Dosage: UNK
  3. SINGULAIR [Concomitant]
     Dosage: UNK
  4. XYZAL [Concomitant]
     Dosage: UNK
  5. FLOVENT [Concomitant]
     Dosage: UNK
  6. PROAIR (ALBUTEROL SULFATE) [Concomitant]
     Dosage: UNK

REACTIONS (3)
  - Urticaria [Unknown]
  - Blister [Recovered/Resolved]
  - Skin irritation [Recovered/Resolved]
